FAERS Safety Report 9474824 (Version 1)
Quarter: 2013Q3

REPORT INFORMATION
  Report Type: Spontaneous
  Country: FI (occurrence: FI)
  Receive Date: 20130823
  Receipt Date: 20130823
  Transmission Date: 20140515
  Serious: Yes (Other)
  Sender: FDA-Public Use
  Company Number: PHHY2013FI089568

PATIENT
  Age: 66 Year
  Sex: Female

DRUGS (1)
  1. METOHEXAL [Suspect]
     Indication: HYPERTENSION
     Dosage: 47.5 MG, QD

REACTIONS (3)
  - Polyp [Not Recovered/Not Resolved]
  - Lung disorder [Not Recovered/Not Resolved]
  - Hepatic enzyme increased [Not Recovered/Not Resolved]
